FAERS Safety Report 8976181 (Version 2)
Quarter: 2013Q1

REPORT INFORMATION
  Report Type: Spontaneous
  Country: US (occurrence: US)
  Receive Date: 20121220
  Receipt Date: 20130116
  Transmission Date: 20140127
  Serious: Yes (Death)
  Sender: FDA-Public Use
  Company Number: US-ELI_LILLY_AND_COMPANY-US201212004160

PATIENT
  Age: 60 Year
  Sex: Male
  Weight: 79.37 kg

DRUGS (14)
  1. ALIMTA [Suspect]
     Indication: NON-SMALL CELL LUNG CANCER
     Dosage: 986 MG, UNK
     Route: 042
     Dates: start: 20120926
  2. CYTOXAN [Concomitant]
  3. VITAMIN B12 [Concomitant]
     Dosage: 1 MG, UNK
     Dates: start: 20120719
  4. FOLIC ACID [Concomitant]
     Dosage: 1 MG, UNK
     Dates: start: 20120719
  5. CORTICOSTEROIDS [Concomitant]
     Dosage: 10 MG, UNK
     Dates: start: 20120925
  6. OMEPRAZOLE [Concomitant]
  7. AMLODIPINE [Concomitant]
  8. LISINOPRIL [Concomitant]
  9. NORVASC [Concomitant]
  10. LEVETIRACETAM [Concomitant]
  11. FENTANYL [Concomitant]
  12. OXYCODONE [Concomitant]
  13. DECADRON                           /00016001/ [Concomitant]
  14. NYSTATIN [Concomitant]

REACTIONS (1)
  - Death [Fatal]
